FAERS Safety Report 20492393 (Version 1)
Quarter: 2022Q1

REPORT INFORMATION
  Report Type: Spontaneous
  Country: CA (occurrence: CA)
  Receive Date: 20220219
  Receipt Date: 20220219
  Transmission Date: 20220423
  Serious: Yes (Hospitalization)
  Sender: FDA-Public Use
  Company Number: CA-AUROBINDO-AUR-APL-2022-004717

PATIENT
  Age: 21 Month
  Sex: Female
  Weight: 14 kg

DRUGS (1)
  1. AMOXICILLIN [Suspect]
     Active Substance: AMOXICILLIN
     Indication: Product used for unknown indication
     Dosage: 12.4 MILLILITER, TWO TIMES A DAY
     Route: 048

REACTIONS (3)
  - Rash maculo-papular [Recovered/Resolved]
  - Petechiae [Recovered/Resolved]
  - Rash erythematous [Recovered/Resolved]
